FAERS Safety Report 15419125 (Version 2)
Quarter: 2018Q4

REPORT INFORMATION
  Report Type: Spontaneous
  Country: US (occurrence: US)
  Receive Date: 20180924
  Receipt Date: 20181003
  Transmission Date: 20190204
  Serious: Yes (Hospitalization)
  Sender: FDA-Public Use
  Company Number: US-JNJFOC-20180920639

PATIENT
  Age: 83 Year
  Sex: Male

DRUGS (15)
  1. MIDODRINE [Concomitant]
     Active Substance: MIDODRINE
  2. PREDNISONE. [Concomitant]
     Active Substance: PREDNISONE
  3. ERLEADA [Suspect]
     Active Substance: APALUTAMIDE
     Indication: PROSTATE CANCER
     Route: 048
  4. RANITIDINE. [Concomitant]
     Active Substance: RANITIDINE
  5. K-PHOS NEUTRAL [Concomitant]
     Active Substance: POTASSIUM PHOSPHATE\SODIUM PHOSPHATE
  6. FERROUS GLUCONATE [Concomitant]
     Active Substance: FERROUS GLUCONATE
  7. OMEGA-3 FATTY ACIDS [Concomitant]
     Active Substance: OMEGA-3 FATTY ACIDS
  8. PANTOPRAZOLE [Concomitant]
     Active Substance: PANTOPRAZOLE
  9. RANEXA [Concomitant]
     Active Substance: RANOLAZINE
  10. ALFUZOSIN [Concomitant]
     Active Substance: ALFUZOSIN
  11. ATORVASTATIN [Concomitant]
     Active Substance: ATORVASTATIN
  12. MULTIVITAMINS [Concomitant]
     Active Substance: VITAMINS
  13. CALCIUM CARBONATE. [Concomitant]
     Active Substance: CALCIUM CARBONATE
  14. FISH OIL [Concomitant]
     Active Substance: FISH OIL
  15. SODIUM ACETATE. [Concomitant]
     Active Substance: SODIUM ACETATE

REACTIONS (2)
  - Eating disorder [Not Recovered/Not Resolved]
  - Abdominal pain upper [Not Recovered/Not Resolved]

NARRATIVE: CASE EVENT DATE: 20180904
